FAERS Safety Report 20297600 (Version 3)
Quarter: 2022Q1

REPORT INFORMATION
  Report Type: Report from Study
  Country: US (occurrence: None)
  Receive Date: 20220105
  Receipt Date: 20220127
  Transmission Date: 20220423
  Serious: Yes (Hospitalization)
  Sender: FDA-Public Use
  Company Number: US-ROCHE-2992699

PATIENT
  Age: 50 Year
  Sex: Male
  Weight: 90.6 kg

DRUGS (14)
  1. VENETOCLAX [Suspect]
     Active Substance: VENETOCLAX
     Indication: B-cell lymphoma
     Dosage: DAY 2-14, EVERY 3 WEEKS
     Route: 048
     Dates: start: 20211127, end: 20211225
  2. POLATUZUMAB VEDOTIN [Suspect]
     Active Substance: POLATUZUMAB VEDOTIN
     Indication: B-cell lymphoma
     Dosage: ON D2, EVERY 3 WEEKS (Q3W), POWDER
     Route: 042
     Dates: start: 20211127, end: 20211218
  3. OBINUTUZUMAB [Suspect]
     Active Substance: OBINUTUZUMAB
     Indication: B-cell lymphoma
     Dosage: DAY 1-2, EVERY 3 WEEKS (Q3W), LIQUID, 25MG/ML
     Route: 042
     Dates: start: 20211126, end: 20211228
  4. IBRUTINIB [Suspect]
     Active Substance: IBRUTINIB
     Indication: B-cell lymphoma
     Dosage: DAY 1-14, EVERY 3 WEEKS
     Route: 048
     Dates: start: 20211126, end: 20211225
  5. LENALIDOMIDE [Suspect]
     Active Substance: LENALIDOMIDE
     Indication: B-cell lymphoma
     Dosage: ON D1-14, EVERY 3 WEEKS
     Route: 048
     Dates: start: 20211126, end: 20211225
  6. PREDNISONE [Suspect]
     Active Substance: PREDNISONE
     Indication: B-cell lymphoma
     Dosage: DAY 1-7, EVERY 3 WEEKS (Q3W)
     Route: 048
     Dates: start: 20211126, end: 20211223
  7. ACETAMINOPHEN [Concomitant]
     Active Substance: ACETAMINOPHEN
     Dosage: 650 MG ACETAMINOPHEN PO AS NEEDED (PRN)
     Dates: start: 20211225
  8. BACTRIM DS [Concomitant]
     Active Substance: SULFAMETHOXAZOLE\TRIMETHOPRIM
     Dosage: PO ON MONDAYS
  9. VALACYCLOVIR [Concomitant]
     Active Substance: VALACYCLOVIR HYDROCHLORIDE
     Dosage: 500 MG PO TWICE DAILY (BID)
     Dates: start: 20210124
  10. POTASSIUM [Concomitant]
     Active Substance: POTASSIUM
     Dosage: 40 MEQ PO BID
     Dates: start: 20211204
  11. FAMOTIDINE [Concomitant]
     Active Substance: FAMOTIDINE
     Dosage: PO EVERY 12 HOURS (Q12H)
     Dates: start: 20211126
  12. BIFIDOBACTERIUM ANIMALIS LACTIS [Concomitant]
     Active Substance: BIFIDOBACTERIUM ANIMALIS LACTIS
     Dosage: PO DAILY (QD) STARTED ON
     Dates: start: 20211126
  13. NEULASTA [Concomitant]
     Active Substance: PEGFILGRASTIM
     Dosage: 6 MG SUBCUTANEOUS (SQ) ON D8 OF EACH CYCLE
     Dates: start: 20211223
  14. OXYCODONE [Concomitant]
     Active Substance: OXYCODONE
     Dosage: 5MG OXYCODONE EVERY EVENING

REACTIONS (1)
  - Drug-induced liver injury [Not Recovered/Not Resolved]

NARRATIVE: CASE EVENT DATE: 20211225
